FAERS Safety Report 4352359-1 (Version None)
Quarter: 2004Q2

REPORT INFORMATION
  Report Type: 
  Country: None (occurrence: None)
  Receive Date: 20040427
  Receipt Date: 20030423
  Transmission Date: 20050107
  Serious: Yes (Disabling)
  Sender: FDA-Public Use
  Company Number: WAES 0304USA02342

PATIENT
  Age: 78 Year
  Sex: Female
  Weight: 70.7611 kg

DRUGS (5)
  1. SINGULAIR [Suspect]
     Indication: ASTHMA
     Dosage: 10 MG/DAILY/PO
     Route: 048
     Dates: start: 20030123, end: 20030424
  2. SINGULAIR [Suspect]
     Indication: BRONCHITIS
     Dosage: 10 MG/DAILY/PO
     Route: 048
     Dates: start: 20030123, end: 20030424
  3. ARMOUR THYROID TABLETS [Concomitant]
  4. FLOVENT [Concomitant]
  5. SEREVENT [Concomitant]

REACTIONS (6)
  - ASTHENIA [None]
  - BALANCE DISORDER [None]
  - DIZZINESS [None]
  - FATIGUE [None]
  - LOSS OF CONSCIOUSNESS [None]
  - NAUSEA [None]
